FAERS Safety Report 4571735-5 (Version None)
Quarter: 2005Q1

REPORT INFORMATION
  Report Type: 
  Country: None (occurrence: None)
  Receive Date: 20050202
  Receipt Date: 20050202
  Transmission Date: 20050727
  Serious: Yes (Other)
  Sender: FDA-Public Use
  Company Number: None

PATIENT
  Sex: Male
  Weight: 102.5129 kg

DRUGS (8)
  1. CETUXIMAB [Suspect]
     Indication: COLON CANCER
     Dosage: 920 MG   ONCE   INTRAVENOU
     Route: 042
     Dates: start: 20041215, end: 20041215
  2. ACETAMINOPHEN [Concomitant]
  3. DEXAMETHASONE [Concomitant]
  4. DIPHENHYDRAMINE HCL [Concomitant]
  5. ERBITUX [Concomitant]
  6. FAMOTIDINE [Concomitant]
  7. FLUOROURACIL [Concomitant]
  8. IRINOTECAN [Concomitant]

REACTIONS (3)
  - FLUSHING [None]
  - RASH PRURITIC [None]
  - URTICARIA [None]
